FAERS Safety Report 12001462 (Version 1)
Quarter: 2016Q1

REPORT INFORMATION
  Report Type: Spontaneous
  Country: US (occurrence: US)
  Receive Date: 20160204
  Receipt Date: 20160204
  Transmission Date: 20160526
  Serious: Yes (Life-Threatening)
  Sender: FDA-Public Use
  Company Number: US-SA-2016SA019008

PATIENT
  Age: 75 Year
  Sex: Male

DRUGS (2)
  1. LANTUS SOLOSTAR [Suspect]
     Active Substance: INSULIN GLARGINE
     Indication: DIABETES MELLITUS
     Dosage: DOSE:10 UNIT(S)
     Route: 065
     Dates: start: 20151217, end: 20151217
  2. SOLOSTAR [Concomitant]
     Active Substance: DEVICE

REACTIONS (7)
  - Hyperhidrosis [Unknown]
  - Peripheral swelling [Unknown]
  - Skin tightness [Unknown]
  - Throat tightness [Unknown]
  - Pain in jaw [Unknown]
  - Vision blurred [Unknown]
  - Bruxism [Unknown]

NARRATIVE: CASE EVENT DATE: 20151217
